FAERS Safety Report 7706796-5 (Version None)
Quarter: 2011Q3

REPORT INFORMATION
  Report Type: 
  Country: None (occurrence: None)
  Receive Date: 20110824
  Receipt Date: 20110818
  Transmission Date: 20111222
  Serious: Yes (Hospitalization, Other)
  Sender: FDA-Public Use
  Company Number: FR-MERCK-1108FRA00082

PATIENT
  Age: 41 Year
  Sex: Female

DRUGS (3)
  1. METFORMIN HYDROCHLORIDE [Concomitant]
     Indication: DIABETES MELLITUS
     Route: 048
     Dates: end: 20100501
  2. JANUVIA [Suspect]
     Indication: DIABETES MELLITUS
     Route: 048
     Dates: start: 20090626, end: 20110601
  3. LEVOTHYROXINE SODIUM [Concomitant]
     Route: 048
     Dates: end: 20100501

REACTIONS (3)
  - PANCREATITIS [None]
  - CHOLANGITIS [None]
  - CHOLELITHIASIS [None]
